FAERS Safety Report 7269753-1 (Version None)
Quarter: 2011Q1

REPORT INFORMATION
  Report Type: 
  Country: None (occurrence: None)
  Receive Date: 20110202
  Receipt Date: 20110128
  Transmission Date: 20110831
  Serious: Yes (Hospitalization)
  Sender: FDA-Public Use
  Company Number: HU-PFIZER INC-2011020527

PATIENT
  Age: 65 Year
  Sex: Male

DRUGS (14)
  1. GLUCOBAY [Concomitant]
     Dosage: UNK
  2. ATORVASTATIN [Concomitant]
     Dosage: UNK
  3. AMARYL [Concomitant]
     Dosage: UNK
  4. SYNCUMAR [Concomitant]
     Dosage: UNK
  5. TRITACE [Concomitant]
     Dosage: UNK
  6. LASIX [Concomitant]
     Dosage: UNK
  7. PANGROL ^BERLIN-CHEMIE^ [Concomitant]
     Dosage: UNK
  8. CARVEDILOL [Concomitant]
     Dosage: UNK
  9. DIGOXIN [Concomitant]
     Dosage: UNK
  10. ASPIRIN [Concomitant]
     Dosage: UNK
  11. SUTENT [Suspect]
     Indication: METASTATIC RENAL CELL CARCINOMA
     Dosage: UNK
     Dates: start: 20090508
  12. ADEXOR [Concomitant]
     Dosage: UNK
  13. SPIRON /CHL/ [Concomitant]
     Dosage: UNK
  14. POTASSIUM CHLORIDE [Concomitant]
     Dosage: UNK

REACTIONS (4)
  - ANAEMIA [None]
  - ATRIAL FIBRILLATION [None]
  - CARDIAC FAILURE [None]
  - MYOCARDIAL ISCHAEMIA [None]
